FAERS Safety Report 8258676-7 (Version None)
Quarter: 2012Q2

REPORT INFORMATION
  Report Type: 
  Country: None (occurrence: None)
  Receive Date: 20120403
  Receipt Date: 20120403
  Transmission Date: 20120825
  Serious: Yes (Hospitalization)
  Sender: FDA-Public Use
  Company Number: None

PATIENT
  Sex: Female
  Weight: 66.6788 kg

DRUGS (2)
  1. OXALPLATIN 100 MG SANOFI -AVENTIS [Suspect]
     Dosage: 40 MG/M2 EVERY 21 DAYS INTRAPERITONEAL
     Route: 033
  2. DOCETAXEL [Suspect]
     Dosage: 75 MG/M2 EVERY 21 DAYS INTRAVENOUS (NOT OTHERWISE SPECIFIED)
     Route: 042

REACTIONS (3)
  - RESPIRATORY TRACT INFECTION BACTERIAL [None]
  - PLEURAL EFFUSION [None]
  - STAPHYLOCOCCAL INFECTION [None]
